FAERS Safety Report 6299173-8 (Version None)
Quarter: 2009Q3

REPORT INFORMATION
  Report Type: 
  Country: None (occurrence: None)
  Receive Date: 20090806
  Receipt Date: 20090729
  Transmission Date: 20100115
  Serious: Yes (Hospitalization)
  Sender: FDA-Public Use
  Company Number: IT-ASTRAZENECA-2009SE03643

PATIENT
  Age: 73 Year
  Sex: Male

DRUGS (10)
  1. OMEPRAZOLE [Suspect]
  2. METFORAL [Concomitant]
  3. NOVONORM 0.5 [Concomitant]
  4. ASPIRIN [Concomitant]
  5. QUARK [Concomitant]
  6. NORVASC [Concomitant]
  7. APROVEL [Concomitant]
  8. TRENTAL [Concomitant]
  9. XATRAL [Concomitant]
  10. RINAZINA [Concomitant]

REACTIONS (3)
  - HYPOCALCAEMIA [None]
  - HYPOMAGNESAEMIA [None]
  - TETANY [None]
